FAERS Safety Report 8775930 (Version 2)
Quarter: 2013Q4

REPORT INFORMATION
  Report Type: Spontaneous
  Country: CA (occurrence: CA)
  Receive Date: 20120910
  Receipt Date: 20131031
  Transmission Date: 20140711
  Serious: Yes (Hospitalization, Disabling, Other)
  Sender: FDA-Public Use
  Company Number: CA-009507513-1206USA01563

PATIENT
  Age: 62 Year
  Sex: Female
  Weight: 62.14 kg

DRUGS (3)
  1. FOSAMAX [Suspect]
     Indication: OSTEOPENIA
     Dosage: 70 MG, QW
     Route: 048
     Dates: start: 2004, end: 2011
  2. DIOVAN [Concomitant]
     Dosage: 80 MG, QD
     Route: 048
  3. PREVACID [Concomitant]
     Dosage: 30 MG, QD
     Route: 048

REACTIONS (2)
  - Femur fracture [Unknown]
  - Fall [Unknown]
